FAERS Safety Report 15580710 (Version 1)
Quarter: 2018Q4

REPORT INFORMATION
  Report Type: Spontaneous
  Country: US (occurrence: US)
  Receive Date: 20181103
  Receipt Date: 20181103
  Transmission Date: 20190205
  Serious: Yes (Other)
  Sender: FDA-Public Use
  Company Number: None

PATIENT
  Age: 28 Year
  Sex: Female
  Weight: 104.3 kg

DRUGS (13)
  1. CETIRIZINE [Concomitant]
     Active Substance: CETIRIZINE HYDROCHLORIDE
     Dates: start: 20180101, end: 20181026
  2. MAGNESIUM [Concomitant]
     Active Substance: MAGNESIUM
     Dates: start: 20180101, end: 20181026
  3. CEFAZOLIN [Concomitant]
     Active Substance: CEFAZOLIN
     Dates: start: 20181026, end: 20181026
  4. LIDOCAINE. [Concomitant]
     Active Substance: LIDOCAINE
     Dates: start: 20181026, end: 20181026
  5. SEVOFLURANE. [Concomitant]
     Active Substance: SEVOFLURANE
     Dates: start: 20181026, end: 20181026
  6. DEXAMETHASONE. [Concomitant]
     Active Substance: DEXAMETHASONE
     Dates: start: 20181026, end: 20181026
  7. PROPOFOL. [Concomitant]
     Active Substance: PROPOFOL
     Dates: start: 20181026, end: 20181026
  8. MIDAZOLAM [Concomitant]
     Active Substance: MIDAZOLAM HYDROCHLORIDE
     Dates: start: 20181026, end: 20181026
  9. ROCURONIUM [Suspect]
     Active Substance: ROCURONIUM BROMIDE
     Indication: NEUROMUSCULAR BLOCKING THERAPY
     Dosage: ?          OTHER FREQUENCY:ONCE;?
     Route: 041
     Dates: start: 20181026, end: 20181026
  10. FOLIC ACID. [Concomitant]
     Active Substance: FOLIC ACID
     Dates: start: 20180101, end: 20181026
  11. METFORMIN [Concomitant]
     Active Substance: METFORMIN HYDROCHLORIDE
     Dates: start: 20180101, end: 20181026
  12. FENTANYL. [Concomitant]
     Active Substance: FENTANYL
     Dates: start: 20181026, end: 20181026
  13. BUPIVACAINE. [Concomitant]
     Active Substance: BUPIVACAINE
     Dates: start: 20181026, end: 20181026

REACTIONS (4)
  - Medical device site haemorrhage [None]
  - Airway complication of anaesthesia [None]
  - Wheezing [None]
  - Endotracheal intubation complication [None]

NARRATIVE: CASE EVENT DATE: 20181026
